FAERS Safety Report 9815406 (Version 1)
Quarter: 2014Q1

REPORT INFORMATION
  Report Type: Spontaneous
  Country: FR (occurrence: FR)
  Receive Date: 20140114
  Receipt Date: 20140114
  Transmission Date: 20141002
  Serious: Yes (Other)
  Sender: FDA-Public Use
  Company Number: FR-JNJFOC-20140102895

PATIENT
  Sex: Female

DRUGS (5)
  1. CAELYX (DOXORUBICIN HYDROCHLORIDE) [Suspect]
     Indication: OVARIAN CANCER
     Dosage: (35-45 MG/M2)
     Route: 042
  2. ENDOXAN [Suspect]
     Indication: OVARIAN CANCER
     Dosage: (500-600 MG/M2) EVERY 4 WEEKS FOR AT LEAST TWO CYCLES
     Route: 042
  3. ANTIEMETIC [Concomitant]
     Route: 065
  4. PREDNISOLONE [Concomitant]
     Dosage: ADMINISTERED 1 DAY BEFORE AND??DURING THE FIRST 3 DAYS OF CHEMOTHERAPY
     Route: 048
  5. B6 VITAMIN [Concomitant]
     Route: 065

REACTIONS (28)
  - Anaemia [Unknown]
  - Ovarian cancer recurrent [Unknown]
  - Vomiting [Unknown]
  - Oesophagitis [Unknown]
  - Thrombocytopenia [Unknown]
  - Neutropenia [Unknown]
  - Leukopenia [Unknown]
  - Asthenia [Unknown]
  - Stomatitis [Unknown]
  - Erythema [Unknown]
  - Palmar-plantar erythrodysaesthesia syndrome [Unknown]
  - Constipation [Unknown]
  - Blood creatinine increased [Unknown]
  - Disease progression [Unknown]
  - Diarrhoea [Unknown]
  - Gastrooesophageal reflux disease [Unknown]
  - Haemorrhoids [Unknown]
  - Nausea [Unknown]
  - Decreased appetite [Unknown]
  - Abdominal pain [Unknown]
  - Gamma-glutamyltransferase increased [Unknown]
  - Aspartate aminotransferase increased [Unknown]
  - Alanine aminotransferase increased [Unknown]
  - Headache [Unknown]
  - Pruritus [Unknown]
  - Dry skin [Unknown]
  - Arrhythmia [Unknown]
  - Gingivitis [Unknown]
